FAERS Safety Report 10080814 (Version 2)
Quarter: 2014Q2

REPORT INFORMATION
  Report Type: Spontaneous
  Country: US (occurrence: US)
  Receive Date: 20140416
  Receipt Date: 20140525
  Transmission Date: 20141212
  Serious: No
  Sender: FDA-Public Use
  Company Number: US-009507513-1404USA004823

PATIENT
  Sex: Male
  Weight: 86.17 kg

DRUGS (1)
  1. INTEGRILIN [Suspect]
     Indication: VASCULAR GRAFT
     Dosage: 16.4 ML/HR FOR 25 MINUTES
     Route: 042
     Dates: start: 20140405, end: 20140405

REACTIONS (1)
  - Platelet disorder [Unknown]
